FAERS Safety Report 6291394-3 (Version None)
Quarter: 2009Q3

REPORT INFORMATION
  Report Type: 
  Country: None (occurrence: None)
  Receive Date: 20090730
  Receipt Date: 20090720
  Transmission Date: 20100115
  Serious: Yes (Hospitalization)
  Sender: FDA-Public Use
  Company Number: FR-ELI_LILLY_AND_COMPANY-FR200907003909

PATIENT
  Age: 69 Year
  Sex: Male

DRUGS (11)
  1. GEMZAR [Suspect]
     Dosage: 1000 MG/M2, EVERY FOUR WEEKS
     Route: 042
     Dates: start: 20090501
  2. NEXIUM [Concomitant]
     Dosage: UNK, DAILY (1/D)
     Route: 065
  3. PREVISCAN [Concomitant]
     Dosage: 1.5 D/F, EACH EVENING
     Route: 048
  4. CORVASAL [Concomitant]
     Dosage: UNK, 3/D
     Route: 065
  5. TRIATEC [Concomitant]
     Dosage: UNK, DAILY (1/D)
     Route: 065
  6. TAHOR [Concomitant]
     Dosage: UNK, DAILY (1/D)
     Route: 065
  7. EZETROL [Concomitant]
     Dosage: UNK, DAILY (1/D)
     Route: 065
  8. CREON [Concomitant]
     Dosage: 25000 U, 3/D
     Route: 065
  9. MOTILIUM [Concomitant]
     Dosage: UNK, 3/D
     Route: 065
  10. CORDARONE [Concomitant]
     Dosage: UNK, DAILY (1/D)
     Route: 065
  11. ALDACTONE [Concomitant]
     Dosage: UNK, 2/D
     Route: 065

REACTIONS (5)
  - ASTHENIA [None]
  - CATHETER RELATED INFECTION [None]
  - CLOSTRIDIAL INFECTION [None]
  - HYPERTHERMIA [None]
  - PURPURA [None]
